FAERS Safety Report 20588970 (Version 2)
Quarter: 2022Q1

REPORT INFORMATION
  Report Type: Report from Study
  Country: CO (occurrence: CO)
  Receive Date: 20220314
  Receipt Date: 20220322
  Transmission Date: 20220423
  Serious: Yes (Hospitalization, Other)
  Sender: FDA-Public Use
  Company Number: CO-NOVARTISPH-NVSC2022CO058312

PATIENT
  Sex: Female

DRUGS (2)
  1. JADENU [Suspect]
     Active Substance: DEFERASIROX
     Indication: Sickle cell disease
     Dosage: 720 MG, QD
     Route: 048
  2. JADENU [Suspect]
     Active Substance: DEFERASIROX
     Indication: Thalassaemia
     Dosage: UNK
     Route: 048

REACTIONS (5)
  - Gaucher^s disease [Unknown]
  - Thalassaemia [Unknown]
  - Haemoglobin decreased [Unknown]
  - Ill-defined disorder [Unknown]
  - Iron overload [Unknown]
